FAERS Safety Report 23222019 (Version 3)
Quarter: 2023Q4

REPORT INFORMATION
  Report Type: Spontaneous
  Country: US (occurrence: US)
  Receive Date: 20231123
  Receipt Date: 20231123
  Transmission Date: 20240110
  Serious: No
  Sender: FDA-Public Use
  Company Number: US-SEPTODONT-2023017882

PATIENT

DRUGS (1)
  1. CITANEST PLAIN [Suspect]
     Active Substance: PRILOCAINE HYDROCHLORIDE
     Indication: Dental local anaesthesia
     Route: 004

REACTIONS (1)
  - Drug ineffective [Unknown]

NARRATIVE: CASE EVENT DATE: 20230712
